FAERS Safety Report 15137174 (Version 1)
Quarter: 2018Q3

REPORT INFORMATION
  Report Type: Spontaneous
  Country: US (occurrence: US)
  Receive Date: 20180712
  Receipt Date: 20180712
  Transmission Date: 20181010
  Serious: No
  Sender: FDA-Public Use
  Company Number: US-FOUNDATIONCONSUMERHC-2017-US-014176

PATIENT
  Sex: Female

DRUGS (1)
  1. NEXT CHOICE ONE DOSE [Suspect]
     Active Substance: LEVONORGESTREL
     Dosage: 1.5 MG TABLET X1 DOSE
     Route: 048
     Dates: start: 20171127, end: 20171127

REACTIONS (8)
  - Eye irritation [Unknown]
  - Pain [Unknown]
  - Malaise [Unknown]
  - Throat irritation [Unknown]
  - Aphasia [Recovering/Resolving]
  - Nausea [Unknown]
  - Swelling face [Unknown]
  - Headache [Unknown]

NARRATIVE: CASE EVENT DATE: 20171127
